FAERS Safety Report 10778347 (Version 2)
Quarter: 2015Q3

REPORT INFORMATION
  Report Type: Report from Study
  Country: US (occurrence: US)
  Receive Date: 20150209
  Receipt Date: 20150805
  Transmission Date: 20151125
  Serious: No
  Sender: FDA-Public Use
  Company Number: US-AMGEN-USASL2014090019

PATIENT
  Age: 65 Year
  Sex: Male

DRUGS (1)
  1. NPLATE [Suspect]
     Active Substance: ROMIPLOSTIM
     Indication: IMMUNE THROMBOCYTOPENIC PURPURA
     Dosage: UNK
     Route: 065
     Dates: start: 201212, end: 201303

REACTIONS (4)
  - Drug ineffective [Recovered/Resolved]
  - Asthenia [Unknown]
  - Feeling abnormal [Unknown]
  - Feeling jittery [Unknown]

NARRATIVE: CASE EVENT DATE: 20121201
